FAERS Safety Report 16863679 (Version 1)
Quarter: 2019Q3

REPORT INFORMATION
  Report Type: Spontaneous
  Country: US (occurrence: US)
  Receive Date: 20190927
  Receipt Date: 20190927
  Transmission Date: 20191005
  Serious: Yes (Other)
  Sender: FDA-Public Use
  Company Number: US-GLAXOSMITHKLINE-US2019172892

PATIENT
  Sex: Female

DRUGS (1)
  1. NUCALA [Suspect]
     Active Substance: MEPOLIZUMAB
     Indication: ASTHMA
     Dosage: 100 MG, CYC LEFT EYE
     Route: 058
     Dates: start: 201905

REACTIONS (3)
  - Pneumonia pseudomonal [Recovered/Resolved]
  - Pneumothorax [Not Recovered/Not Resolved]
  - Bronchiectasis [Not Recovered/Not Resolved]

NARRATIVE: CASE EVENT DATE: 2019
